FAERS Safety Report 13073537 (Version 1)
Quarter: 2016Q4

REPORT INFORMATION
  Report Type: Spontaneous
  Country: DE (occurrence: DE)
  Receive Date: 20161229
  Receipt Date: 20161229
  Transmission Date: 20170207
  Serious: Yes (Other)
  Sender: FDA-Public Use
  Company Number: DE-FRESENIUS KABI-FK201610299

PATIENT
  Age: 61 Year
  Sex: Male

DRUGS (8)
  1. OXALIPLATIN (MANUFACTURER UNKNOWN) [Suspect]
     Active Substance: OXALIPLATIN
     Indication: OESOPHAGEAL ADENOCARCINOMA
     Route: 065
  2. 5-FLUOROURACIL [Concomitant]
     Active Substance: FLUOROURACIL
     Indication: METASTASES TO LIVER
  3. 5-FLUOROURACIL [Concomitant]
     Active Substance: FLUOROURACIL
     Indication: OESOPHAGEAL ADENOCARCINOMA
  4. LEUCOVORIN. [Concomitant]
     Active Substance: LEUCOVORIN
     Indication: OESOPHAGEAL ADENOCARCINOMA
  5. OXALIPLATIN (MANUFACTURER UNKNOWN) [Suspect]
     Active Substance: OXALIPLATIN
     Indication: METASTASES TO LIVER
  6. LEUCOVORIN. [Concomitant]
     Active Substance: LEUCOVORIN
     Indication: METASTASES TO LIVER
  7. DOCETAXEL. [Concomitant]
     Active Substance: DOCETAXEL
     Indication: METASTASES TO LIVER
  8. DOCETAXEL. [Concomitant]
     Active Substance: DOCETAXEL
     Indication: OESOPHAGEAL ADENOCARCINOMA

REACTIONS (1)
  - Pulmonary fibrosis [Unknown]
